FAERS Safety Report 9553745 (Version 2)
Quarter: 2014Q3

REPORT INFORMATION
  Report Type: Spontaneous
  Country: US (occurrence: None)
  Receive Date: 20130815
  Receipt Date: 20140815
  Transmission Date: 20150326
  Serious: Yes (Hospitalization, Other)
  Sender: FDA-Public Use
  Company Number: ADR-2013-00612

PATIENT
  Sex: Female

DRUGS (2)
  1. BACLOFEN INTRATHECAL [Suspect]
     Active Substance: BACLOFEN
     Indication: MUSCLE SPASTICITY
     Dates: start: 20130306, end: 20140318
  2. LIORESAL [Suspect]
     Active Substance: BACLOFEN
     Dosage: .75 TABLET 3 TIMES A DAY

REACTIONS (16)
  - Muscle spasms [None]
  - Therapeutic response decreased [None]
  - Hypothermia [None]
  - Clonus [None]
  - Lethargy [None]
  - Overdose [None]
  - Convulsion [None]
  - Muscle tightness [None]
  - Somnolence [None]
  - Body temperature decreased [None]
  - Unevaluable event [None]
  - Altered state of consciousness [None]
  - Discomfort [None]
  - Hypotonia [None]
  - Hypertonia [None]
  - Sedation [None]
